FAERS Safety Report 12088305 (Version 1)
Quarter: 2016Q1

REPORT INFORMATION
  Report Type: Spontaneous
  Country: US (occurrence: US)
  Receive Date: 20160218
  Receipt Date: 20160218
  Transmission Date: 20160526
  Serious: Yes (Other)
  Sender: FDA-Public Use
  Company Number: US-CIPLA LTD.-2016US01105

PATIENT

DRUGS (2)
  1. DFMO [Suspect]
     Active Substance: EFLORNITHINE
     Indication: ADENOMATOUS POLYPOSIS COLI
     Route: 065
  2. CELECOXIB. [Suspect]
     Active Substance: CELECOXIB
     Indication: ADENOMATOUS POLYPOSIS COLI
     Dosage: 400 MG, BID
     Route: 048

REACTIONS (1)
  - Gout [Unknown]
